FAERS Safety Report 12749783 (Version 2)
Quarter: 2016Q4

REPORT INFORMATION
  Report Type: Spontaneous
  Country: US (occurrence: US)
  Receive Date: 20160916
  Receipt Date: 20161125
  Transmission Date: 20170207
  Serious: Yes (Other)
  Sender: FDA-Public Use
  Company Number: US-AUROBINDO-AUR-APL-2016-11721

PATIENT
  Sex: Female
  Weight: 52.16 kg

DRUGS (5)
  1. DILTIAZEM                          /00489702/ [Concomitant]
     Active Substance: DILTIAZEM
     Indication: BLOOD PRESSURE MEASUREMENT
     Dosage: 120 MG, ONCE A DAY
     Route: 065
     Dates: start: 20160301
  2. NORVASC [Concomitant]
     Active Substance: AMLODIPINE BESYLATE
     Indication: BLOOD PRESSURE MEASUREMENT
     Dosage: 2.5 MG, ONCE A DAY
     Route: 065
  3. OXYCODONE [Suspect]
     Active Substance: OXYCODONE
     Indication: PRODUCT USED FOR UNKNOWN INDICATION
     Dosage: UNK
     Route: 065
  4. GABAPENTIN. [Suspect]
     Active Substance: GABAPENTIN
     Indication: PRODUCT USED FOR UNKNOWN INDICATION
     Route: 065
  5. MICARDIS [Concomitant]
     Active Substance: TELMISARTAN
     Indication: CARDIAC DISORDER
     Dosage: 40 MG, UNK
     Route: 065

REACTIONS (5)
  - Feeling drunk [Unknown]
  - Dysstasia [Unknown]
  - Personality change [Unknown]
  - Constipation [Unknown]
  - Abdominal discomfort [Unknown]
